FAERS Safety Report 9758968 (Version 1)
Quarter: 2013Q4

REPORT INFORMATION
  Report Type: Spontaneous
  Country: TR (occurrence: TR)
  Receive Date: 20131216
  Receipt Date: 20131216
  Transmission Date: 20140711
  Serious: Yes (Other)
  Sender: FDA-Public Use
  Company Number: TR-ASTELLAS-2013EU010960

PATIENT
  Age: 23 Year
  Sex: Female

DRUGS (6)
  1. TACROLIMUS SYSTEMIC [Suspect]
     Indication: IMMUNOSUPPRESSION
     Dosage: 0.2 MG/KG, UNKNOWN/D
     Route: 065
  2. TACROLIMUS SYSTEMIC [Suspect]
     Dosage: 3 MG, UNKNOWN/D
     Route: 065
  3. MYCOPHENOLATE MOFETIL [Concomitant]
     Indication: IMMUNOSUPPRESSION
     Dosage: 2 G, UNKNOWN/D
     Route: 065
  4. PREDNISOLONE [Concomitant]
     Indication: IMMUNOSUPPRESSION
     Dosage: 20 MG, UNKNOWN/D
     Route: 065
  5. PREDNISOLONE [Concomitant]
     Dosage: 10 MG, UNKNOWN/D
     Route: 065
  6. AZATHIOPRINE [Concomitant]
     Indication: IMMUNOSUPPRESSION
     Dosage: 50 MG, UNKNOWN/D
     Route: 065

REACTIONS (4)
  - Off label use [Unknown]
  - Exposure during pregnancy [Unknown]
  - Urinary tract infection [Unknown]
  - Abortion spontaneous [Unknown]
